FAERS Safety Report 6686171-5 (Version None)
Quarter: 2010Q2

REPORT INFORMATION
  Report Type: 
  Country: None (occurrence: None)
  Receive Date: 20100419
  Receipt Date: 20100409
  Transmission Date: 20101027
  Serious: Yes (Hospitalization, Other)
  Sender: FDA-Public Use
  Company Number: PHHY2010GB01047

PATIENT
  Sex: Male

DRUGS (5)
  1. EXJADE [Suspect]
     Indication: THALASSAEMIA BETA
     Dosage: 625 MG, QD
     Route: 048
     Dates: start: 20090301, end: 20091201
  2. EXJADE [Suspect]
     Indication: IRON OVERLOAD
     Dosage: 312.5 MG, QD
     Route: 048
  3. ABDEC [Concomitant]
     Dosage: 0.6 ML, QD
     Dates: start: 20090901, end: 20100101
  4. SOLVAZINC [Concomitant]
     Dosage: 1 DF, QD
  5. CALCICHEW [Concomitant]
     Dosage: 1 TABLET NOCTE

REACTIONS (17)
  - ABDOMINAL PAIN [None]
  - ABDOMINAL TENDERNESS [None]
  - BLOOD PHOSPHORUS DECREASED [None]
  - DIARRHOEA [None]
  - DYSPEPSIA [None]
  - GASTRITIS [None]
  - GASTROENTERITIS NOROVIRUS [None]
  - HAEMATOCHEZIA [None]
  - HAEMOGLOBIN DECREASED [None]
  - HAEMOPHILUS INFECTION [None]
  - HYPOPHAGIA [None]
  - MALAISE [None]
  - MELAENA [None]
  - NAUSEA [None]
  - PEPTIC ULCER [None]
  - SPLENOMEGALY [None]
  - VOMITING [None]
